FAERS Safety Report 6260895-6 (Version None)
Quarter: 2009Q3

REPORT INFORMATION
  Report Type: 
  Country: None (occurrence: None)
  Receive Date: 20090707
  Receipt Date: 20090622
  Transmission Date: 20100115
  Serious: Yes (Other)
  Sender: FDA-Public Use
  Company Number: 2009AL004237

PATIENT
  Age: 68 Year
  Sex: Male

DRUGS (9)
  1. DIGOXIN [Suspect]
     Dosage: PO
     Route: 048
  2. AMIODARONE HCL [Concomitant]
  3. ACIPIMOX [Concomitant]
  4. ASPIRIN [Concomitant]
  5. BISOPROLOL FUMARATE [Concomitant]
  6. EZETIMIBE [Concomitant]
  7. FUROSEMIDE [Concomitant]
  8. PERINDOPRIL [Concomitant]
  9. LANSOPRAZOLE [Concomitant]

REACTIONS (3)
  - ATRIAL FIBRILLATION [None]
  - LEFT VENTRICULAR FAILURE [None]
  - PARAESTHESIA [None]
